FAERS Safety Report 8838348 (Version 1)
Quarter: 2012Q4

REPORT INFORMATION
  Report Type: 
  Country: SG (occurrence: SG)
  Receive Date: 20121012
  Receipt Date: 20121012
  Transmission Date: 20130627
  Serious: Yes (Hospitalization)
  Sender: FDA-Public Use
  Company Number: SG-GLAXOSMITHKLINE-B0837189A

PATIENT
  Age: 74 Year
  Sex: Female
  Weight: 51.8 kg

DRUGS (3)
  1. VOTRIENT [Suspect]
     Indication: ANGIOSARCOMA METASTATIC
     Dosage: 800MG Per day
     Route: 048
     Dates: start: 20120711, end: 20120725
  2. AMLODIPINE [Concomitant]
     Dosage: 5MG Per day
     Route: 048
  3. ATENOLOL [Concomitant]
     Dosage: 50MG Per day
     Route: 048

REACTIONS (2)
  - Rash maculo-papular [Recovered/Resolved]
  - Petechiae [Recovered/Resolved]
